FAERS Safety Report 4435894-7 (Version None)
Quarter: 2004Q3

REPORT INFORMATION
  Report Type: 
  Country: None (occurrence: None)
  Receive Date: 20040726
  Receipt Date: 20040303
  Transmission Date: 20050211
  Serious: No
  Sender: FDA-Public Use
  Company Number: USA031153202

PATIENT
  Age: 70 Year
  Sex: Female
  Weight: 52 kg

DRUGS (4)
  1. FORTEO [Suspect]
     Indication: OSTEOPOROSIS
     Dates: start: 20031105
  2. PRILOSEC [Concomitant]
  3. ASPIRIN [Concomitant]
  4. CALCIUM WITH VITAMIN D [Concomitant]

REACTIONS (6)
  - ASTHENIA [None]
  - FEELING ABNORMAL [None]
  - HEADACHE [None]
  - INJECTION SITE HAEMORRHAGE [None]
  - NAUSEA [None]
  - NERVOUSNESS [None]
